FAERS Safety Report 5845275-7 (Version None)
Quarter: 2008Q3

REPORT INFORMATION
  Report Type: 
  Country: None (occurrence: None)
  Receive Date: 20080814
  Receipt Date: 20080714
  Transmission Date: 20090109
  Serious: Yes (Other)
  Sender: FDA-Public Use
  Company Number: PHHY2008PK17461

PATIENT
  Age: 25 Year
  Sex: Female

DRUGS (3)
  1. GENTEAL GEL (NVO) [Suspect]
     Dosage: APPLICATION
     Route: 061
     Dates: start: 20080422, end: 20080430
  2. ZOVIRAX [Concomitant]
  3. CILOXAN [Concomitant]

REACTIONS (7)
  - BLINDNESS [None]
  - EYE IRRITATION [None]
  - EYE SWELLING [None]
  - LACRIMATION INCREASED [None]
  - OCULAR HYPERAEMIA [None]
  - PRURITUS [None]
  - ULCERATIVE KERATITIS [None]
